FAERS Safety Report 5194402-6 (Version None)
Quarter: 2006Q4

REPORT INFORMATION
  Report Type: 
  Country: None (occurrence: None)
  Receive Date: 20061228
  Receipt Date: 20061220
  Transmission Date: 20070319
  Serious: Yes (Other)
  Sender: FDA-Public Use
  Company Number: US-PFIZER INC-2006155510

PATIENT
  Age: 48 Year
  Sex: Male
  Weight: 88.9 kg

DRUGS (12)
  1. CHANTIX [Suspect]
     Indication: SMOKING CESSATION THERAPY
     Route: 048
  2. FISH OIL [Concomitant]
     Route: 048
  3. LIPITOR [Concomitant]
     Route: 048
  4. LOPID [Concomitant]
     Route: 048
  5. ALLOPURINOL SODIUM [Concomitant]
     Route: 048
  6. ASPIRIN [Concomitant]
     Route: 048
  7. BECONASE [Concomitant]
  8. LOTREL [Concomitant]
     Route: 048
  9. MIRAPEX [Concomitant]
     Route: 048
  10. PRILOSEC [Concomitant]
     Route: 048
  11. TOPROL-XL [Concomitant]
     Route: 048
  12. VITAMIN E [Concomitant]
     Route: 048

REACTIONS (1)
  - BLOOD TRIGLYCERIDES INCREASED [None]
